FAERS Safety Report 9774586 (Version 1)
Quarter: 2013Q4

REPORT INFORMATION
  Report Type: Spontaneous
  Country: RU (occurrence: RU)
  Receive Date: 20131220
  Receipt Date: 20131220
  Transmission Date: 20140711
  Serious: Yes (Other)
  Sender: FDA-Public Use
  Company Number: RU-ROXANE LABORATORIES, INC.-2013-RO-01986RO

PATIENT
  Sex: 0

DRUGS (1)
  1. PROPRANOLOL [Suspect]
     Indication: HAEMANGIOMA CONGENITAL
     Route: 048

REACTIONS (1)
  - Sinus arrest [Unknown]
